FAERS Safety Report 4383742-6 (Version None)
Quarter: 2004Q2

REPORT INFORMATION
  Report Type: 
  Country: None (occurrence: None)
  Receive Date: 20040608
  Receipt Date: 20030715
  Transmission Date: 20050107
  Serious: Yes (Other)
  Sender: FDA-Public Use
  Company Number: 200312432BCC

PATIENT
  Age: 61 Year
  Sex: Female
  Weight: 90.7194 kg

DRUGS (7)
  1. ALEVE [Suspect]
     Indication: ARTHRITIS
     Dosage: 220 MG, BID, ORAL
     Route: 048
     Dates: start: 20030401, end: 20030715
  2. AVANDIA [Concomitant]
  3. INDAPAMIDE [Concomitant]
  4. VIOXX [Concomitant]
  5. VERAPAMIL [Concomitant]
  6. NEURONTIN [Concomitant]
  7. ALLOPURINOL [Concomitant]

REACTIONS (1)
  - BLOOD GLUCOSE INCREASED [None]
